FAERS Safety Report 14686296 (Version 1)
Quarter: 2018Q1

REPORT INFORMATION
  Report Type: Spontaneous
  Country: US (occurrence: US)
  Receive Date: 20180326
  Receipt Date: 20180326
  Transmission Date: 20180509
  Serious: Yes (Other)
  Sender: FDA-Public Use
  Company Number: None

PATIENT
  Age: 37 Year
  Sex: Female
  Weight: 75.15 kg

DRUGS (5)
  1. RHINOCORT [Concomitant]
     Active Substance: BUDESONIDE
  2. PRENATAL VITAMINS [Concomitant]
     Active Substance: VITAMINS
  3. BUSPAR [Concomitant]
     Active Substance: BUSPIRONE HYDROCHLORIDE
  4. ZYRTEC [Suspect]
     Active Substance: CETIRIZINE HYDROCHLORIDE
     Indication: SEASONAL ALLERGY
     Dosage: ?          QUANTITY:1 TABLET(S);?
     Route: 048
  5. DICYCLOMINE [Concomitant]
     Active Substance: DICYCLOMINE HYDROCHLORIDE

REACTIONS (6)
  - Pruritus [None]
  - Pain [None]
  - Crying [None]
  - Withdrawal syndrome [None]
  - Urticaria [None]
  - Sleep disorder [None]

NARRATIVE: CASE EVENT DATE: 20171030
